FAERS Safety Report 12964569 (Version 1)
Quarter: 2016Q4

REPORT INFORMATION
  Report Type: Spontaneous
  Country: BR (occurrence: BR)
  Receive Date: 20161122
  Receipt Date: 20161122
  Transmission Date: 20170207
  Serious: Yes (Other)
  Sender: FDA-Public Use
  Company Number: BR-PFIZER INC-2016537595

PATIENT
  Age: 67 Year
  Sex: Male
  Weight: 80 kg

DRUGS (1)
  1. XALATAN [Suspect]
     Active Substance: LATANOPROST
     Indication: GLAUCOMA
     Dosage: 2 GTT, 1X/DAY (1 DROP IN EACH EYE ONCE PER DAY)
     Route: 047

REACTIONS (2)
  - Blindness [Unknown]
  - Visual impairment [Unknown]
